FAERS Safety Report 9169095 (Version 2)
Quarter: 2013Q2

REPORT INFORMATION
  Report Type: Report from Study
  Country: US (occurrence: US)
  Receive Date: 20130318
  Receipt Date: 20130426
  Transmission Date: 20140414
  Serious: Yes (Hospitalization, Other)
  Sender: FDA-Public Use
  Company Number: US-GLAXOSMITHKLINE-A1016013A

PATIENT
  Age: 11 Year
  Sex: Male
  Weight: 41.1 kg

DRUGS (11)
  1. NELARABINE [Suspect]
     Indication: T-CELL TYPE ACUTE LEUKAEMIA
     Dosage: 650MGM2 CYCLIC
     Route: 042
     Dates: start: 20130304
  2. METHOTREXATE [Suspect]
     Indication: T-CELL TYPE ACUTE LEUKAEMIA
     Route: 037
  3. CYCLOPHOSPHAMIDE [Suspect]
     Indication: T-CELL TYPE ACUTE LEUKAEMIA
     Dosage: 1000MGM2 CYCLIC
     Route: 042
  4. CYTARABINE [Suspect]
     Indication: T-CELL TYPE ACUTE LEUKAEMIA
     Dosage: 75MGM2 CYCLIC
  5. MERCAPTOPURINE [Suspect]
     Indication: T-CELL TYPE ACUTE LEUKAEMIA
     Dosage: 60MGM2 CYCLIC
     Route: 048
  6. VINCRISTINE [Suspect]
     Indication: T-CELL TYPE ACUTE LEUKAEMIA
     Dosage: 1.5MGM2 CYCLIC
     Route: 042
  7. PEGASPARGASE [Suspect]
     Indication: T-CELL TYPE ACUTE LEUKAEMIA
     Route: 030
  8. RADIATION [Concomitant]
     Indication: T-CELL TYPE ACUTE LEUKAEMIA
     Route: 061
  9. BACTRIM [Concomitant]
  10. COLACE [Concomitant]
  11. MIRALAX [Concomitant]

REACTIONS (4)
  - Rhabdomyolysis [Recovered/Resolved]
  - Muscular weakness [Recovering/Resolving]
  - Blood creatine phosphokinase increased [Recovering/Resolving]
  - Aspartate aminotransferase increased [Recovering/Resolving]
